FAERS Safety Report 22656147 (Version 2)
Quarter: 2023Q2

REPORT INFORMATION
  Report Type: Spontaneous
  Country: US (occurrence: US)
  Receive Date: 20230629
  Receipt Date: 20230630
  Transmission Date: 20230722
  Serious: No
  Sender: FDA-Public Use
  Company Number: US-002147023-NVSC2023US146435

PATIENT
  Sex: Female

DRUGS (1)
  1. LEQVIO [Suspect]
     Active Substance: INCLISIRAN SODIUM
     Indication: Low density lipoprotein increased
     Dosage: 284 MG/KG (284MG/1.5M), OTHER (INITIAL DOSE AND 3 MONTHS)
     Route: 065
     Dates: start: 20221102, end: 20230616

REACTIONS (3)
  - Myalgia [Unknown]
  - Low density lipoprotein increased [Unknown]
  - Arthralgia [Unknown]
